FAERS Safety Report 13577013 (Version 1)
Quarter: 2017Q2

REPORT INFORMATION
  Report Type: Spontaneous
  Country: US (occurrence: US)
  Receive Date: 20170524
  Receipt Date: 20170524
  Transmission Date: 20170830
  Serious: No
  Sender: FDA-Public Use
  Company Number: US-009507513-1705USA011247

PATIENT
  Sex: Female

DRUGS (1)
  1. NEXPLANON [Suspect]
     Active Substance: ETONOGESTREL
     Route: 059

REACTIONS (6)
  - Device breakage [Unknown]
  - Complication associated with device [Unknown]
  - Hostility [Unknown]
  - Amenorrhoea [Unknown]
  - Mood altered [Unknown]
  - Menstruation irregular [Unknown]
